FAERS Safety Report 8391888-0 (Version None)
Quarter: 2012Q2

REPORT INFORMATION
  Report Type: 
  Country: None (occurrence: None)
  Receive Date: 20120529
  Receipt Date: 20120520
  Transmission Date: 20120825
  Serious: Yes (Hospitalization)
  Sender: FDA-Public Use
  Company Number: US-GLAXOSMITHKLINE-A0978951A

PATIENT
  Age: 53 Year

DRUGS (1)
  1. FLOLAN [Suspect]
     Indication: PRODUCT USED FOR UNKNOWN INDICATION
     Dosage: 92NGKM CONTINUOUS
     Route: 065
     Dates: start: 20110512

REACTIONS (1)
  - HAEMOPTYSIS [None]
